FAERS Safety Report 8926166 (Version 1)
Quarter: 2012Q4

REPORT INFORMATION
  Report Type: 
  Country: US (occurrence: US)
  Receive Date: 20121126
  Receipt Date: 20121126
  Transmission Date: 20130627
  Serious: Yes (Hospitalization)
  Sender: FDA-Public Use
  Company Number: US-BAYER-2012-121801

PATIENT
  Age: 34 Year
  Sex: Female
  Weight: 57 kg

DRUGS (14)
  1. GIANVI [Suspect]
     Dosage: UNK
     Dates: start: 20110714
  2. MULTIVITAMIN [Concomitant]
     Dosage: Daily
  3. SERTRALINE HYDROCHLORIDE [Concomitant]
     Dosage: 100 mg, 135 dispensed
  4. AMOXICILLIN [Concomitant]
     Dosage: 500 mg, 30 dispensed
  5. HYDROCODONE W/ACETAMINOPHEN [Concomitant]
     Dosage: 5-500 mg; 30 dispensed
  6. CYCLOBENZAPRINE [Concomitant]
     Dosage: 10 mg, 90 dispensed
  7. ACETAMINOPHEN W/CODEINE [Concomitant]
     Dosage: 90 tablets dispensed
  8. CLONAZEPAM [Concomitant]
     Dosage: 0.5 mg, 180 dispensed
  9. LIDOCAINE [Concomitant]
  10. CLARITIN-D [Concomitant]
  11. CLARITIN-D 12 HOUR [Concomitant]
  12. SERTRALINE [Concomitant]
  13. LEVOFLOXACIN [Concomitant]
  14. STEROIDS [Concomitant]

REACTIONS (3)
  - Pulmonary embolism [None]
  - Pulmonary infarction [None]
  - Pleural effusion [None]
